FAERS Safety Report 9391580 (Version 3)
Quarter: 2014Q1

REPORT INFORMATION
  Report Type: Spontaneous
  Country: US (occurrence: US)
  Receive Date: 20130709
  Receipt Date: 20140107
  Transmission Date: 20141002
  Serious: Yes (Death, Hospitalization)
  Sender: FDA-Public Use
  Company Number: US-GLAXOSMITHKLINE-A0764575A

PATIENT
  Age: 63 Year
  Sex: Male
  Weight: 125.5 kg

DRUGS (1)
  1. AVANDIA [Suspect]
     Indication: TYPE 2 DIABETES MELLITUS
     Dosage: 4MG TWICE PER DAY
     Route: 048
     Dates: end: 200804

REACTIONS (3)
  - Cardio-respiratory arrest [Fatal]
  - Myocardial infarction [Unknown]
  - Coronary artery disease [Unknown]
